FAERS Safety Report 7164684-X (Version None)
Quarter: 2010Q4

REPORT INFORMATION
  Report Type: 
  Country: None (occurrence: None)
  Receive Date: 20101215
  Receipt Date: 20101208
  Transmission Date: 20110411
  Serious: Yes (Other)
  Sender: FDA-Public Use
  Company Number: JP-PFIZER INC-2008151631

PATIENT
  Age: 55 Year
  Sex: Female

DRUGS (10)
  1. RIFABUTIN [Suspect]
     Indication: MYCOBACTERIUM AVIUM COMPLEX INFECTION
     Dosage: 300 MG, 1X/DAY
     Dates: start: 20081024, end: 20081030
  2. RIFABUTIN [Suspect]
     Dosage: 150 MG, 1X/DAY
     Dates: start: 20081121, end: 20081122
  3. CLARITHROMYCIN [Concomitant]
     Indication: MYCOBACTERIUM AVIUM COMPLEX INFECTION
     Dosage: 800 MG, 1X/DAY
     Route: 048
     Dates: start: 20081024, end: 20081030
  4. CLARITHROMYCIN [Concomitant]
     Dosage: 200 MG, 3X/DAY
     Route: 048
     Dates: start: 20081121
  5. ESANBUTOL [Concomitant]
     Indication: MYCOBACTERIUM AVIUM COMPLEX INFECTION
     Dosage: 500 MG, 1X/DAY
     Route: 048
     Dates: start: 20081024, end: 20081030
  6. MUCOSOLVAN [Concomitant]
     Dosage: 15 MG, 3X/DAY
     Route: 048
     Dates: start: 20020813
  7. MUCODYNE [Concomitant]
     Dosage: 500 MG, 3X/DAY
     Route: 048
     Dates: start: 20070927
  8. FERROUS CITRATE [Concomitant]
     Dosage: 50 MG, 1X/DAY
     Route: 048
     Dates: start: 20020910
  9. SELBEX [Concomitant]
     Dosage: 50 MG, 3X/DAY
     Route: 048
  10. MAGNESIUM OXIDE [Concomitant]
     Dosage: 500 MG, 2X/DAY
     Route: 048

REACTIONS (11)
  - CHILLS [None]
  - DECREASED APPETITE [None]
  - DEHYDRATION [None]
  - DIARRHOEA [None]
  - GENERAL PHYSICAL CONDITION ABNORMAL [None]
  - HEAD INJURY [None]
  - HYPERHIDROSIS [None]
  - HYPOAESTHESIA [None]
  - LOSS OF CONSCIOUSNESS [None]
  - NIGHT SWEATS [None]
  - TREMOR [None]
